FAERS Safety Report 22385259 (Version 2)
Quarter: 2023Q2

REPORT INFORMATION
  Report Type: Report from Study
  Country: US (occurrence: US)
  Receive Date: 20230530
  Receipt Date: 20230605
  Transmission Date: 20230721
  Serious: No
  Sender: FDA-Public Use
  Company Number: US-002147023-NVSC2023US119528

PATIENT
  Sex: Male
  Weight: 48.99 kg

DRUGS (9)
  1. MUPIROCIN [Suspect]
     Active Substance: MUPIROCIN
     Indication: Psoriasis
     Dosage: UNK
     Route: 065
  2. KETOCONAZOLE [Suspect]
     Active Substance: KETOCONAZOLE
     Indication: Psoriasis
     Dosage: UNK
     Route: 065
  3. DOXYCYCLINE [Suspect]
     Active Substance: DOXYCYCLINE
     Indication: Psoriasis
     Dosage: UNK
     Route: 065
  4. ERYTHROMYCIN [Suspect]
     Active Substance: ERYTHROMYCIN
     Indication: Psoriasis
     Dosage: UNK
     Route: 065
  5. CLINDAMYCIN [Suspect]
     Active Substance: CLINDAMYCIN
     Indication: Psoriasis
     Dosage: UNK
     Route: 065
  6. ALCLOMETASONE [Suspect]
     Active Substance: ALCLOMETASONE
     Indication: Psoriasis
     Dosage: UNK
     Route: 065
  7. CICLOPIROX [Suspect]
     Active Substance: CICLOPIROX
     Indication: Psoriasis
     Dosage: UNK
     Route: 065
  8. ADAPALENE [Suspect]
     Active Substance: ADAPALENE
     Indication: Psoriasis
     Dosage: UNK
     Route: 065
  9. ELIDEL [Suspect]
     Active Substance: PIMECROLIMUS
     Indication: Psoriasis
     Dosage: UNK
     Route: 065

REACTIONS (13)
  - Acne [Unknown]
  - Rash [Unknown]
  - Papule [Unknown]
  - Skin exfoliation [Unknown]
  - Weight increased [Unknown]
  - Hordeolum [Unknown]
  - Eye infection [Unknown]
  - Psoriasis [Unknown]
  - Eyelid rash [Unknown]
  - Eyelid exfoliation [Unknown]
  - Erythema of eyelid [Recovered/Resolved]
  - Therapeutic product effect incomplete [Unknown]
  - Product use in unapproved indication [Unknown]
